FAERS Safety Report 5624179-9 (Version None)
Quarter: 2008Q1

REPORT INFORMATION
  Report Type: 
  Country: None (occurrence: None)
  Receive Date: 20080213
  Receipt Date: 20080204
  Transmission Date: 20080703
  Serious: Yes (Other)
  Sender: FDA-Public Use
  Company Number: PHHO2007IT13277

PATIENT
  Age: 63 Year
  Sex: Female

DRUGS (3)
  1. NEORAL [Suspect]
     Indication: RENAL TRANSPLANT
     Dosage: 300 MG, QD
     Route: 048
     Dates: start: 20061017
  2. PREDNISONE TAB [Concomitant]
     Dates: start: 20061017
  3. MYCOPHENOLATE MOFETIL [Concomitant]
     Dates: start: 20061017

REACTIONS (3)
  - AMNESIA [None]
  - TREMOR [None]
  - VISION BLURRED [None]
